FAERS Safety Report 7294933-9 (Version None)
Quarter: 2011Q1

REPORT INFORMATION
  Report Type: 
  Country: None (occurrence: None)
  Receive Date: 20110216
  Receipt Date: 20110207
  Transmission Date: 20110831
  Serious: No
  Sender: FDA-Public Use
  Company Number: US-BAYER-201033850NA

PATIENT
  Sex: Female

DRUGS (1)
  1. MIRENA [Suspect]
     Indication: PROCEDURAL PAIN
     Dosage: 20 ?G, CONT
     Route: 015
     Dates: start: 20100819, end: 20100830

REACTIONS (2)
  - PROCEDURAL PAIN [None]
  - PELVIC PAIN [None]
